FAERS Safety Report 16016160 (Version 1)
Quarter: 2019Q1

REPORT INFORMATION
  Report Type: Spontaneous
  Country: US (occurrence: US)
  Receive Date: 20190227
  Receipt Date: 20190227
  Transmission Date: 20190418
  Serious: Yes (Disabling)
  Sender: FDA-Public Use
  Company Number: None

PATIENT
  Sex: Female

DRUGS (1)
  1. CIPROFLOXACIN. [Suspect]
     Active Substance: CIPROFLOXACIN
     Indication: URINARY TRACT INFECTION
     Dates: start: 20120101, end: 20140901

REACTIONS (6)
  - Asthenia [None]
  - Neuropathy peripheral [None]
  - Myalgia [None]
  - Fatigue [None]
  - Cystitis interstitial [None]
  - Toxicity to various agents [None]
